FAERS Safety Report 15318405 (Version 1)
Quarter: 2018Q3

REPORT INFORMATION
  Report Type: Spontaneous
  Country: US (occurrence: US)
  Receive Date: 20180817
  Receipt Date: 20180817
  Transmission Date: 20181010
  Serious: No
  Sender: FDA-Public Use
  Company Number: None

PATIENT
  Sex: Female

DRUGS (1)
  1. OTEZLA [Suspect]
     Active Substance: APREMILAST
     Indication: PSORIASIS
     Route: 048
     Dates: start: 201706

REACTIONS (6)
  - Weight decreased [None]
  - Dizziness [None]
  - Decreased appetite [None]
  - Drug effect decreased [None]
  - Toothache [None]
  - Therapy change [None]
